FAERS Safety Report 7393730-3 (Version None)
Quarter: 2011Q1

REPORT INFORMATION
  Report Type: 
  Country: None (occurrence: None)
  Receive Date: 20110331
  Receipt Date: 20110331
  Transmission Date: 20110831
  Serious: Yes (Other)
  Sender: FDA-Public Use
  Company Number: None

PATIENT
  Sex: Female
  Weight: 88.905 kg

DRUGS (2)
  1. VERAPAMIL EXTENDED-RELEASE [Suspect]
     Indication: PALPITATIONS
     Dosage: 240MG QD ORAL #047
     Route: 048
     Dates: start: 20110201, end: 20110301
  2. VERAPAMIL EXTENDED-RELEASE [Suspect]
     Indication: SUPRAVENTRICULAR TACHYCARDIA
     Dosage: 240MG QD ORAL #047
     Route: 048
     Dates: start: 20110201, end: 20110301

REACTIONS (2)
  - PALPITATIONS [None]
  - SUPRAVENTRICULAR TACHYCARDIA [None]
